FAERS Safety Report 13456172 (Version 3)
Quarter: 2017Q2

REPORT INFORMATION
  Report Type: Report from Study
  Country: US (occurrence: US)
  Receive Date: 20170418
  Receipt Date: 20170509
  Transmission Date: 20170830
  Serious: Yes (Other)
  Sender: FDA-Public Use
  Company Number: PHHO2017US006632

PATIENT
  Age: 49 Year
  Sex: Female
  Weight: 67.4 kg

DRUGS (21)
  1. OXYCODONE [Concomitant]
     Active Substance: OXYCODONE
     Indication: PAIN MANAGEMENT
     Dosage: 20 MG, PRN
     Route: 048
     Dates: start: 20120201
  2. OXYCODONE [Concomitant]
     Active Substance: OXYCODONE
     Dosage: 80 MG, PRN
     Route: 048
     Dates: start: 20160914
  3. GABAPENTIN. [Concomitant]
     Active Substance: GABAPENTIN
     Indication: NECK PAIN
     Dosage: 600 MG, TID
     Route: 048
     Dates: start: 20131007
  4. LOMOTIL [Concomitant]
     Active Substance: ATROPINE SULFATE\DIPHENOXYLATE HYDROCHLORIDE
     Indication: DIARRHOEA
     Dosage: UNK
     Route: 048
     Dates: start: 20161024
  5. OXYCODONE [Concomitant]
     Active Substance: OXYCODONE
     Indication: OSTEONECROSIS
     Dosage: 60 MG, BID
     Route: 048
     Dates: start: 20160204, end: 20160204
  6. KISQALI [Suspect]
     Active Substance: RIBOCICLIB
     Indication: BREAST CANCER
     Dosage: 400 MG, QD
     Route: 048
     Dates: start: 20160210, end: 20170410
  7. ANASTROZOLE. [Suspect]
     Active Substance: ANASTROZOLE
     Indication: BREAST CANCER
     Dosage: 1 MG, QD
     Route: 048
     Dates: start: 20160204
  8. ACETAMINOPHEN. [Concomitant]
     Active Substance: ACETAMINOPHEN
     Indication: PAIN MANAGEMENT
     Dosage: 650 MG, PRN
     Route: 048
     Dates: start: 20050201
  9. OMEPRAZOLE. [Concomitant]
     Active Substance: OMEPRAZOLE
     Indication: GASTROOESOPHAGEAL REFLUX DISEASE
     Dosage: 20 MG, BID
     Route: 048
     Dates: start: 20140801
  10. GABAPENTIN. [Concomitant]
     Active Substance: GABAPENTIN
     Indication: PAIN IN EXTREMITY
  11. ONDANSETRON [Concomitant]
     Active Substance: ONDANSETRON
     Indication: NAUSEA
     Dosage: 4 MG, PRN
     Route: 048
     Dates: start: 20130201
  12. ONDANSETRON [Concomitant]
     Active Substance: ONDANSETRON
     Indication: VOMITING
  13. DULOXETINE. [Concomitant]
     Active Substance: DULOXETINE
     Indication: DEPRESSION
     Dosage: 30 MG, QD
     Route: 048
     Dates: start: 20160726
  14. ALBUTEROL. [Concomitant]
     Active Substance: ALBUTEROL
     Indication: PROPHYLAXIS
     Dosage: 108 MCG/ML, PRN
     Route: 048
     Dates: start: 20050201
  15. LORAZEPAM. [Concomitant]
     Active Substance: LORAZEPAM
     Indication: ANXIETY
     Dosage: 1 MG, TID
     Route: 048
     Dates: start: 20151101
  16. LIDOCAINE. [Concomitant]
     Active Substance: LIDOCAINE
     Indication: INDUCTION OF ANAESTHESIA
     Dosage: 5 ML, TID
     Route: 058
     Dates: start: 20160113
  17. GOSERELIN ACETATE [Suspect]
     Active Substance: GOSERELIN ACETATE
     Indication: BREAST CANCER
     Dosage: 3.6 MG, EVERY 28 DAYS
     Route: 058
     Dates: start: 20160113
  18. OXYCODONE [Concomitant]
     Active Substance: OXYCODONE
     Dosage: 80 MG, BID
     Route: 048
     Dates: start: 20160205, end: 20160210
  19. OXYCODONE [Concomitant]
     Active Substance: OXYCODONE
     Dosage: 100 MG, BID
     Route: 048
     Dates: start: 20160211
  20. MOMETASONE FUROATE. [Concomitant]
     Active Substance: MOMETASONE FUROATE
     Indication: PRODUCTIVE COUGH
     Dosage: 200 INHALATION, BID
     Route: 055
     Dates: start: 20160406
  21. HYDROCORTISONE. [Concomitant]
     Active Substance: HYDROCORTISONE
     Indication: RASH
     Dosage: 2.5 APPLICATION, BID
     Route: 061
     Dates: start: 20160420

REACTIONS (1)
  - Lung infection [Recovered/Resolved]

NARRATIVE: CASE EVENT DATE: 20170410
